FAERS Safety Report 8374837-0 (Version None)
Quarter: 2012Q2

REPORT INFORMATION
  Report Type: 
  Country: None (occurrence: None)
  Receive Date: 20120521
  Receipt Date: 20120508
  Transmission Date: 20120825
  Serious: No
  Sender: FDA-Public Use
  Company Number: US-ASTRAZENECA-2012SE29714

PATIENT
  Sex: Female

DRUGS (5)
  1. ZOLOFT [Concomitant]
  2. NEXIUM [Suspect]
     Route: 048
  3. SEROQUEL [Suspect]
     Indication: BIPOLAR DISORDER
     Route: 048
  4. LITHIUM CARBONATE [Concomitant]
  5. ZYPREXA [Concomitant]

REACTIONS (5)
  - SCHIZOPHRENIA [None]
  - HALLUCINATION, AUDITORY [None]
  - INTENTIONAL DRUG MISUSE [None]
  - SCHIZOPHRENIA, PARANOID TYPE [None]
  - HALLUCINATION, VISUAL [None]
